FAERS Safety Report 5502768-X (Version None)
Quarter: 2007Q4

REPORT INFORMATION
  Report Type: 
  Country: None (occurrence: None)
  Receive Date: 20071031
  Receipt Date: 20071029
  Transmission Date: 20080405
  Serious: Yes (Death, Hospitalization, Other)
  Sender: FDA-Public Use
  Company Number: PHBS2000JP10074

PATIENT
  Age: 48 Year
  Sex: Female

DRUGS (1)
  1. SANDIMMUNE [Suspect]
     Indication: BONE MARROW TRANSPLANT
     Dosage: 100 MG/DAY
     Route: 048
     Dates: start: 19990601, end: 19990101

REACTIONS (13)
  - ACUTE GRAFT VERSUS HOST DISEASE [None]
  - ACUTE RESPIRATORY DISTRESS SYNDROME [None]
  - BLOOD LACTATE DEHYDROGENASE INCREASED [None]
  - HAEMOLYTIC ANAEMIA [None]
  - HERPES ZOSTER [None]
  - MULTI-ORGAN FAILURE [None]
  - PULMONARY ALVEOLAR HAEMORRHAGE [None]
  - RED BLOOD CELL ABNORMALITY [None]
  - RED BLOOD CELL SCHISTOCYTES PRESENT [None]
  - RESPIRATORY FAILURE [None]
  - RETICULOCYTE COUNT INCREASED [None]
  - THROMBOCYTOPENIA [None]
  - THROMBOTIC MICROANGIOPATHY [None]
